FAERS Safety Report 17902488 (Version 1)
Quarter: 2020Q2

REPORT INFORMATION
  Report Type: Spontaneous
  Country: US (occurrence: US)
  Receive Date: 20200616
  Receipt Date: 20200616
  Transmission Date: 20200714
  Serious: Yes (Other)
  Sender: FDA-Public Use
  Company Number: US-SA-2020SA150190

PATIENT

DRUGS (1)
  1. TOUJEO MAX [Suspect]
     Active Substance: INSULIN GLARGINE
     Indication: TYPE 1 DIABETES MELLITUS
     Dosage: 19 IU, QD
     Route: 065

REACTIONS (5)
  - Adverse drug reaction [Unknown]
  - Loss of consciousness [Unknown]
  - Blindness [Unknown]
  - Blood glucose decreased [Recovered/Resolved]
  - Intentional product use issue [Recovered/Resolved]
